FAERS Safety Report 17987893 (Version 1)
Quarter: 2020Q3

REPORT INFORMATION
  Report Type: Spontaneous
  Country: US (occurrence: US)
  Receive Date: 20200706
  Receipt Date: 20200706
  Transmission Date: 20201103
  Serious: Yes (Death)
  Sender: FDA-Public Use
  Company Number: None

PATIENT
  Age: 63 Year
  Sex: Male
  Weight: 84 kg

DRUGS (21)
  1. DEXAMETHASONE. [Concomitant]
     Active Substance: DEXAMETHASONE
     Dates: start: 20200630, end: 20200705
  2. HEPARIN [Concomitant]
     Active Substance: HEPARIN SODIUM
     Dates: start: 20200629, end: 20200705
  3. REMDESIVIR. [Suspect]
     Active Substance: REMDESIVIR
     Indication: COVID-19
     Dates: start: 20200702, end: 20200705
  4. ASPRIN [Concomitant]
     Active Substance: ASPIRIN
     Dates: start: 20200702, end: 20200705
  5. FENTANY DRIP [Concomitant]
     Dates: start: 20200629, end: 20200703
  6. NICARDIPINE DRIP [Concomitant]
     Active Substance: NICARDIPINE
     Dates: start: 20200629, end: 20200704
  7. REMDESIVIR. [Suspect]
     Active Substance: REMDESIVIR
     Indication: COVID-19
     Route: 042
     Dates: start: 20200701, end: 20200701
  8. AMLODIPINE [Concomitant]
     Active Substance: AMLODIPINE BESYLATE
     Dates: start: 20200704, end: 20200705
  9. LANTUS [Concomitant]
     Active Substance: INSULIN GLARGINE
     Dates: start: 20200704, end: 20200705
  10. VANCOMYCIN [Concomitant]
     Active Substance: VANCOMYCIN
     Dates: start: 20200702, end: 20200704
  11. CHOLECALCIFEROL [Concomitant]
     Active Substance: CHOLECALCIFEROL
     Dates: start: 20200630, end: 20200705
  12. ASCORBIC ACID. [Concomitant]
     Active Substance: ASCORBIC ACID
     Dates: start: 20200629, end: 20200705
  13. NOREPINEPHRINE DRIP [Concomitant]
     Dates: start: 20200629, end: 20200705
  14. CLOPIDOGREL [Concomitant]
     Active Substance: CLOPIDOGREL BISULFATE
     Dates: start: 20200702, end: 20200705
  15. DOCUSATE [Concomitant]
     Active Substance: DOCUSATE
     Dates: start: 20200630, end: 20200704
  16. ZINC. [Concomitant]
     Active Substance: ZINC
     Dates: start: 20200630, end: 20200705
  17. ATOVASTATIN [Concomitant]
     Active Substance: ATORVASTATIN
     Dates: start: 20200630, end: 20200705
  18. HUMALOG [Concomitant]
     Active Substance: INSULIN LISPRO
     Dates: start: 20200629, end: 20200705
  19. VERSED DRIP [Concomitant]
     Dates: start: 20200629, end: 20200703
  20. CEFEPIME [Concomitant]
     Active Substance: CEFEPIME HYDROCHLORIDE
     Dates: start: 20200702, end: 20200704
  21. RUCURONIUM DRIP [Concomitant]
     Dates: start: 20200629, end: 20200703

REACTIONS (7)
  - Cerebral infarction [None]
  - Renal failure [None]
  - Brain death [None]
  - Cerebrovascular accident [None]
  - Pupil fixed [None]
  - Acute respiratory failure [None]
  - Brain herniation [None]

NARRATIVE: CASE EVENT DATE: 20200705
